FAERS Safety Report 25775714 (Version 3)
Quarter: 2025Q4

REPORT INFORMATION
  Report Type: Report from Study
  Country: CN (occurrence: CN)
  Receive Date: 20250909
  Receipt Date: 20251003
  Transmission Date: 20260118
  Serious: Yes (Hospitalization)
  Sender: EISAI
  Company Number: CN-Eisai-EC-2025-196076

PATIENT
  Age: 50 Year
  Sex: Female

DRUGS (10)
  1. ERIBULIN [Suspect]
     Active Substance: ERIBULIN
     Indication: Breast cancer
     Route: 042
     Dates: start: 20250606, end: 202508
  2. ERIBULIN [Suspect]
     Active Substance: ERIBULIN
     Dosage: DOSE REDUCED UNKNOWN
     Route: 042
     Dates: start: 2025
  3. BICYCLOL [Concomitant]
     Active Substance: BICYCLOL
     Indication: Alanine aminotransferase increased
     Route: 048
     Dates: start: 20250726
  4. BICYCLOL [Concomitant]
     Active Substance: BICYCLOL
     Indication: Aspartate aminotransferase increased
  5. LECITHIN [Concomitant]
     Active Substance: LECITHIN
     Indication: Alanine aminotransferase increased
     Route: 048
     Dates: start: 20250726
  6. LECITHIN [Concomitant]
     Active Substance: LECITHIN
     Indication: Aspartate aminotransferase increased
  7. LEUCOGEN [Concomitant]
     Active Substance: LEUCOGEN
     Indication: White blood cell count decreased
     Route: 048
     Dates: start: 20250813, end: 20250907
  8. LEUCOGEN [Concomitant]
     Active Substance: LEUCOGEN
     Indication: Neutrophil count decreased
  9. GRANULOCYTE COLONY-STIMULATING FACTOR NOS [Concomitant]
     Active Substance: GRANULOCYTE COLONY-STIMULATING FACTOR NOS
     Indication: White blood cell count decreased
     Dates: start: 20250819, end: 20250821
  10. GRANULOCYTE COLONY-STIMULATING FACTOR NOS [Concomitant]
     Active Substance: GRANULOCYTE COLONY-STIMULATING FACTOR NOS
     Indication: Neutrophil count decreased

REACTIONS (2)
  - Proteinuria [Recovered/Resolved]
  - Cystitis [Recovered/Resolved]

NARRATIVE: CASE EVENT DATE: 20250729
